FAERS Safety Report 6249752-9 (Version None)
Quarter: 2009Q2

REPORT INFORMATION
  Report Type: 
  Country: None (occurrence: None)
  Receive Date: 20090624
  Receipt Date: 20090612
  Transmission Date: 20091009
  Serious: Yes (Death, Hospitalization, Other)
  Sender: FDA-Public Use
  Company Number: 82538

PATIENT
  Age: 34 Year
  Sex: Male

DRUGS (1)
  1. CYCLOSPORINE [Suspect]
     Indication: IMMUNOSUPPRESSION
     Dosage: 5MG/KG/DAY

REACTIONS (10)
  - ACARODERMATITIS [None]
  - ACINETOBACTER INFECTION [None]
  - HERPES SIMPLEX [None]
  - HYPOXIA [None]
  - INFLAMMATION [None]
  - METABOLIC ACIDOSIS [None]
  - RENAL IMPAIRMENT [None]
  - SEPSIS [None]
  - SKIN NECROSIS [None]
  - SKIN ULCER [None]
